FAERS Safety Report 13357380 (Version 1)
Quarter: 2017Q1

REPORT INFORMATION
  Report Type: Spontaneous
  Country: US (occurrence: US)
  Receive Date: 20170322
  Receipt Date: 20170322
  Transmission Date: 20170429
  Serious: Yes (Disabling, Other)
  Sender: FDA-Public Use
  Company Number: US-AUROBINDO-AUR-APL-2014-04451

PATIENT

DRUGS (1)
  1. OXYCODONE AND ACETAMINOPHEN [Suspect]
     Active Substance: ACETAMINOPHEN\OXYCODONE HYDROCHLORIDE
     Indication: PAIN
     Dosage: UNK UNK,UNK,
     Route: 065

REACTIONS (3)
  - Activities of daily living impaired [Recovered/Resolved]
  - Somnolence [Recovered/Resolved]
  - Headache [Recovered/Resolved]
